FAERS Safety Report 4979320-8 (Version None)
Quarter: 2006Q2

REPORT INFORMATION
  Report Type: 
  Country: None (occurrence: None)
  Receive Date: 20060421
  Receipt Date: 20051207
  Transmission Date: 20061013
  Serious: Yes (Hospitalization)
  Sender: FDA-Public Use
  Company Number: US-MERCK-0512USA01343

PATIENT
  Age: 49 Year
  Sex: Male
  Weight: 101 kg

DRUGS (2)
  1. VIOXX [Suspect]
     Indication: ARTHRITIS
     Route: 048
     Dates: start: 20000101, end: 20010101
  2. VIOXX [Suspect]
     Route: 048
     Dates: start: 20021101

REACTIONS (19)
  - ABDOMINAL DISCOMFORT [None]
  - ANGINA PECTORIS [None]
  - ANHEDONIA [None]
  - ARTERIAL OCCLUSIVE DISEASE [None]
  - ARTHRALGIA [None]
  - CHEST PAIN [None]
  - CORONARY ARTERY DISEASE [None]
  - DERMATITIS [None]
  - ELECTROCARDIOGRAM ABNORMAL [None]
  - FASCIITIS [None]
  - FATIGUE [None]
  - HEADACHE [None]
  - HYPERTENSION [None]
  - HYPERTRIGLYCERIDAEMIA [None]
  - LOSS OF CONSCIOUSNESS [None]
  - MYOCARDIAL INFARCTION [None]
  - OSTEOARTHRITIS [None]
  - PAIN [None]
  - VENTRICULAR HYPERTROPHY [None]
